FAERS Safety Report 7358565-6 (Version None)
Quarter: 2011Q1

REPORT INFORMATION
  Report Type: 
  Country: None (occurrence: None)
  Receive Date: 20110317
  Receipt Date: 20110304
  Transmission Date: 20110831
  Serious: Yes (Hospitalization, Other)
  Sender: FDA-Public Use
  Company Number: GB-WATSON-2011-02736

PATIENT
  Age: 36 Year
  Sex: Female

DRUGS (8)
  1. LACOSAMIDE [Suspect]
     Dosage: UNK
     Route: 065
  2. OXCARBAZEPINE [Suspect]
     Dosage: 300 MG, DAILY
     Route: 065
  3. LACOSAMIDE [Suspect]
     Dosage: 100 MG, DAILY
     Route: 065
  4. TOPIRAMATE [Suspect]
     Indication: EPILEPSY
     Dosage: 250 MG, DAILY
     Route: 048
  5. OXCARBAZEPINE [Suspect]
     Indication: EPILEPSY
     Dosage: 1350 MG, UNKNOWN
     Route: 065
  6. LACOSAMIDE [Suspect]
     Indication: EPILEPSY
     Dosage: 200 MG, DAILY
     Route: 065
  7. PHENYTOIN [Suspect]
     Indication: EPILEPSY
     Dosage: 150 MG, DAILY
     Route: 065
  8. OXCARBAZEPINE [Suspect]
     Dosage: 1200 MG, DAILY
     Route: 065

REACTIONS (4)
  - BALANCE DISORDER [None]
  - DRUG INTERACTION [None]
  - DIPLOPIA [None]
  - DRUG INEFFECTIVE [None]
